FAERS Safety Report 14453487 (Version 1)
Quarter: 2018Q1

REPORT INFORMATION
  Report Type: Spontaneous
  Country: US (occurrence: US)
  Receive Date: 20180127
  Receipt Date: 20180127
  Transmission Date: 20180509
  Serious: Yes (Other)
  Sender: FDA-Public Use
  Company Number: None

PATIENT
  Age: 3 Year
  Sex: Female

DRUGS (1)
  1. TAMIFLU [Suspect]
     Active Substance: OSELTAMIVIR PHOSPHATE
     Indication: INFLUENZA A VIRUS TEST POSITIVE
     Dosage: QUANTITY:1 TEASPOON(S);?
     Route: 048
     Dates: start: 20180124, end: 20180126

REACTIONS (1)
  - Urticaria [None]

NARRATIVE: CASE EVENT DATE: 20180126
